FAERS Safety Report 19716671 (Version 1)
Quarter: 2021Q3

REPORT INFORMATION
  Report Type: Spontaneous
  Country: US (occurrence: US)
  Receive Date: 20210819
  Receipt Date: 20210819
  Transmission Date: 20211014
  Serious: Yes (Death, Other)
  Sender: FDA-Public Use
  Company Number: US-AUROBINDO-AUR-APL-2021-034201

PATIENT
  Age: 73 Year
  Sex: Female

DRUGS (1)
  1. IRBESARTAN. [Suspect]
     Active Substance: IRBESARTAN
     Indication: PRODUCT USED FOR UNKNOWN INDICATION
     Dosage: UNK
     Route: 065

REACTIONS (8)
  - Hypoglycaemia [Unknown]
  - Shock [Unknown]
  - Hypothermia [Unknown]
  - Acute kidney injury [Unknown]
  - Acute myocardial infarction [Unknown]
  - Encephalopathy [Unknown]
  - Blood lactic acid increased [Unknown]
  - Acute hepatic failure [Fatal]
